FAERS Safety Report 13860050 (Version 1)
Quarter: 2017Q3

REPORT INFORMATION
  Report Type: Spontaneous
  Country: US (occurrence: US)
  Receive Date: 20170811
  Receipt Date: 20170811
  Transmission Date: 20171127
  Serious: Yes (Death, Other)
  Sender: FDA-Public Use
  Company Number: US-TORRENT-00003268

PATIENT
  Age: 25 Month
  Sex: Female

DRUGS (9)
  1. CETIRIZINE HYDROCHLORIDE. [Suspect]
     Active Substance: CETIRIZINE HYDROCHLORIDE
  2. AMLODIPINE BESILATE [Suspect]
     Active Substance: AMLODIPINE BESYLATE
  3. TACROLIMUS. [Suspect]
     Active Substance: TACROLIMUS
  4. MAGNESIUM CARBONATE [Suspect]
     Active Substance: MAGNESIUM CARBONATE
  5. POLYETHYLENE GLYCOL [Suspect]
     Active Substance: POLYETHYLENE GLYCOLS
  6. ENALAPRIL MALEATE. [Suspect]
     Active Substance: ENALAPRIL MALEATE
  7. NYSTATIN. [Suspect]
     Active Substance: NYSTATIN
  8. MYCOPHENOLATE MOFETIL. [Suspect]
     Active Substance: MYCOPHENOLATE MOFETIL
  9. MOMETASONE FUROATE. [Suspect]
     Active Substance: MOMETASONE FUROATE

REACTIONS (2)
  - Eosinophilia [Fatal]
  - Myocarditis [Fatal]
